FAERS Safety Report 9742616 (Version 3)
Quarter: 2015Q3

REPORT INFORMATION
  Report Type: Spontaneous
  Country: US (occurrence: US)
  Receive Date: 20131210
  Receipt Date: 20150804
  Transmission Date: 20151125
  Serious: No
  Sender: FDA-Public Use
  Company Number: US-GILEAD-2009-0024709

PATIENT
  Age: 93 Year
  Sex: Male
  Weight: 72.57 kg

DRUGS (13)
  1. HUMULIN L [Concomitant]
     Active Substance: INSULIN HUMAN
  2. CARBIDOPA-LEVO [Concomitant]
     Active Substance: CARBIDOPA\LEVODOPA
  3. MULTIGEN [Concomitant]
  4. LETAIRIS [Suspect]
     Active Substance: AMBRISENTAN
     Indication: PULMONARY ARTERIAL HYPERTENSION
     Route: 048
     Dates: start: 20090602
  5. NOVOLIN [Concomitant]
     Active Substance: INSULIN HUMAN
  6. TIMOLOL. [Concomitant]
     Active Substance: TIMOLOL
  7. FUROSEMIDE. [Concomitant]
     Active Substance: FUROSEMIDE
  8. ALBUTEROL. [Concomitant]
     Active Substance: ALBUTEROL
  9. AVODART [Concomitant]
     Active Substance: DUTASTERIDE
  10. GALANTAMINE. [Concomitant]
     Active Substance: GALANTAMINE
  11. COUMADIN [Concomitant]
     Active Substance: WARFARIN SODIUM
  12. COLCHICINE. [Concomitant]
     Active Substance: COLCHICINE
  13. CARVEDILOL. [Concomitant]
     Active Substance: CARVEDILOL

REACTIONS (1)
  - Headache [Recovering/Resolving]
